FAERS Safety Report 8470571-7 (Version None)
Quarter: 2012Q2

REPORT INFORMATION
  Report Type: 
  Country: None (occurrence: None)
  Receive Date: 20120627
  Receipt Date: 20120622
  Transmission Date: 20120825
  Serious: Yes (Hospitalization)
  Sender: FDA-Public Use
  Company Number: PHHY2012JP049923

PATIENT
  Age: 70 Year
  Sex: Female

DRUGS (1)
  1. RITALIN [Suspect]
     Indication: NARCOLEPSY
     Dosage: 30 MG, DAILY
     Route: 048
     Dates: start: 20120330

REACTIONS (2)
  - FRACTURE [None]
  - FALL [None]
